FAERS Safety Report 6142385-4 (Version None)
Quarter: 2009Q2

REPORT INFORMATION
  Report Type: 
  Country: None (occurrence: None)
  Receive Date: 20090403
  Receipt Date: 20090324
  Transmission Date: 20091009
  Serious: Yes (Other)
  Sender: FDA-Public Use
  Company Number: US-JNJFOC-20090106465

PATIENT
  Sex: Female
  Weight: 90.72 kg

DRUGS (1)
  1. ULTRAM ER [Suspect]
     Indication: PAIN
     Route: 048
     Dates: start: 20090105, end: 20090114

REACTIONS (2)
  - DIZZINESS [None]
  - HALLUCINATION [None]
